FAERS Safety Report 6019616-4 (Version None)
Quarter: 2008Q4

REPORT INFORMATION
  Report Type: 
  Country: None (occurrence: None)
  Receive Date: 20081222
  Receipt Date: 20080306
  Transmission Date: 20090506
  Serious: Yes (Other)
  Sender: FDA-Public Use
  Company Number: US-JNJFOC-20080301767

PATIENT
  Age: 53 Year
  Sex: Female
  Weight: 58.9676 kg

DRUGS (2)
  1. MOTRIN  TAB [Suspect]
     Indication: HEADACHE
     Dosage: 200 MG, 1 IN 1 TOTAL, ORAL
     Route: 048
     Dates: start: 20080301, end: 20080301
  2. EFFEXOR [Concomitant]

REACTIONS (1)
  - THROAT TIGHTNESS [None]
